FAERS Safety Report 7014363-4 (Version None)
Quarter: 2010Q3

REPORT INFORMATION
  Report Type: 
  Country: None (occurrence: None)
  Receive Date: 20100924
  Receipt Date: 20100924
  Transmission Date: 20110219
  Serious: Yes (Hospitalization)
  Sender: FDA-Public Use
  Company Number: None

PATIENT
  Age: 60 Year
  Sex: Male

DRUGS (1)
  1. FLUCONAZOLE [Suspect]
     Dosage: FLUCONAZOLE 200MG DAILY PO
     Route: 048
     Dates: start: 20090922, end: 20090923

REACTIONS (2)
  - DIARRHOEA [None]
  - LIVER FUNCTION TEST ABNORMAL [None]
